FAERS Safety Report 9451200 (Version 1)
Quarter: 2013Q3

REPORT INFORMATION
  Report Type: Report from Study
  Country: US (occurrence: US)
  Receive Date: 20130809
  Receipt Date: 20130809
  Transmission Date: 20140515
  Serious: Yes (Hospitalization)
  Sender: FDA-Public Use
  Company Number: US-ABBOTT-13P-163-1127943-00

PATIENT
  Sex: Female
  Weight: 68.55 kg

DRUGS (5)
  1. HUMIRA [Suspect]
     Indication: PSORIASIS
     Dates: start: 20130219
  2. UNKNOWN BLOOD PRESSURE MEDICATION [Concomitant]
     Indication: HYPERTENSION
  3. CHANTIX [Concomitant]
     Indication: ARTHRALGIA
  4. CHANTIX [Concomitant]
     Indication: ANXIETY
  5. UNKNOWN SLEEPING PILL [Concomitant]
     Indication: INSOMNIA

REACTIONS (2)
  - Suicide attempt [Recovered/Resolved]
  - Inappropriate schedule of drug administration [Unknown]
